FAERS Safety Report 23961013 (Version 3)
Quarter: 2024Q3

REPORT INFORMATION
  Report Type: Spontaneous
  Country: US (occurrence: US)
  Receive Date: 20240611
  Receipt Date: 20240730
  Transmission Date: 20241016
  Serious: Yes (Other)
  Sender: SANOFI AVENTIS
  Company Number: US-SA-SAC20240604000097

PATIENT
  Sex: Female

DRUGS (2)
  1. DUPIXENT [Suspect]
     Active Substance: DUPILUMAB
     Indication: Arthropathy
     Dosage: 300 MG, QOW
     Route: 058
  2. SUPER MULTIPLE [Concomitant]

REACTIONS (6)
  - Pelvic fracture [Unknown]
  - Fall [Unknown]
  - Contusion [Unknown]
  - Skin swelling [Unknown]
  - Rash [Unknown]
  - Product use in unapproved indication [Unknown]
